FAERS Safety Report 6929623-2 (Version None)
Quarter: 2010Q3

REPORT INFORMATION
  Report Type: 
  Country: None (occurrence: None)
  Receive Date: 20100813
  Receipt Date: 20100805
  Transmission Date: 20110219
  Serious: Yes (Hospitalization)
  Sender: FDA-Public Use
  Company Number: 2010MA001461

PATIENT
  Age: 37 Year
  Sex: Female

DRUGS (2)
  1. EPIRUBICIN HYDROCHLORIDE [Suspect]
     Indication: LIPOSARCOMA
  2. IFOSFAMIDE [Suspect]
     Indication: LIPOSARCOMA

REACTIONS (7)
  - FATIGUE [None]
  - LIPOSARCOMA METASTATIC [None]
  - MALIGNANT NEOPLASM PROGRESSION [None]
  - METASTASES TO LUNG [None]
  - MYELODYSPLASTIC SYNDROME [None]
  - PLATELET COUNT DECREASED [None]
  - REFRACTORY ANAEMIA WITH AN EXCESS OF BLASTS [None]
